FAERS Safety Report 4884382-2 (Version None)
Quarter: 2006Q1

REPORT INFORMATION
  Report Type: 
  Country: None (occurrence: None)
  Receive Date: 20060117
  Receipt Date: 20060117
  Transmission Date: 20060701
  Serious: Yes (Hospitalization)
  Sender: FDA-Public Use
  Company Number: None

PATIENT
  Age: 63 Year
  Sex: Male

DRUGS (12)
  1. AVANDIA [Suspect]
     Indication: DIABETES MELLITUS
     Dosage: 8 MG QAM PO; 4 MG QHS PO
     Route: 048
     Dates: start: 20000301, end: 20040101
  2. LISINOPRIL [Suspect]
     Indication: HYPERTENSION
     Dosage: 5 MG QD PO
     Route: 048
     Dates: start: 20000901, end: 20040101
  3. VIOXX [Suspect]
     Indication: ARTHRITIS
     Dosage: 25 MG QD PO
     Route: 048
     Dates: start: 20030301, end: 20040101
  4. METFORMIN HCL [Concomitant]
  5. NYSTATIN [Concomitant]
  6. ZINC OXIDE [Concomitant]
  7. BACITRACIN [Concomitant]
  8. CHLOPHENIRAMINE [Concomitant]
  9. FENTANYL CITRATE [Concomitant]
  10. POLIVINY ALCOHOL [Concomitant]
  11. MICONAZOLE [Concomitant]
  12. TERAZOCIN [Concomitant]

REACTIONS (1)
  - SODIUM RETENTION [None]
